FAERS Safety Report 7794419-9 (Version None)
Quarter: 2011Q4

REPORT INFORMATION
  Report Type: 
  Country: None (occurrence: None)
  Receive Date: 20111004
  Receipt Date: 20111004
  Transmission Date: 20120403
  Serious: Yes (Hospitalization)
  Sender: FDA-Public Use
  Company Number: None

PATIENT
  Age: 57 Year
  Sex: Female
  Weight: 77 kg

DRUGS (1)
  1. LYRICA [Suspect]
     Indication: PAIN

REACTIONS (2)
  - OVERDOSE [None]
  - SUICIDE ATTEMPT [None]
